FAERS Safety Report 19452663 (Version 4)
Quarter: 2022Q1

REPORT INFORMATION
  Report Type: Report from Study
  Country: US (occurrence: US)
  Receive Date: 20210623
  Receipt Date: 20220218
  Transmission Date: 20220423
  Serious: Yes (Hospitalization, Other)
  Sender: FDA-Public Use
  Company Number: US-TAKEDA-2021TUS037536

PATIENT
  Sex: Male

DRUGS (12)
  1. TEDUGLUTIDE [Suspect]
     Active Substance: TEDUGLUTIDE
     Indication: Short-bowel syndrome
     Dosage: 5 MILLIGRAM
     Route: 065
     Dates: start: 20170615, end: 20170713
  2. TEDUGLUTIDE [Suspect]
     Active Substance: TEDUGLUTIDE
     Indication: Short-bowel syndrome
     Dosage: 5 MILLIGRAM
     Route: 065
     Dates: start: 20170615, end: 20170713
  3. TEDUGLUTIDE [Suspect]
     Active Substance: TEDUGLUTIDE
     Indication: Short-bowel syndrome
     Dosage: 5 MILLIGRAM
     Route: 065
     Dates: start: 20170615, end: 20170713
  4. TEDUGLUTIDE [Suspect]
     Active Substance: TEDUGLUTIDE
     Indication: Short-bowel syndrome
     Dosage: 5 MILLIGRAM
     Route: 065
     Dates: start: 20170615, end: 20170713
  5. PANCRELIPASE [Concomitant]
     Active Substance: PANCRELIPASE
     Indication: Steatorrhoea
     Dosage: 999999.9 INTERNATIONAL UNIT, TID
     Route: 048
     Dates: start: 20210214
  6. FIDAXOMICIN [Concomitant]
     Active Substance: FIDAXOMICIN
     Indication: Clostridium test positive
     Dosage: 200 MILLIGRAM, BID
     Route: 048
     Dates: start: 20210202, end: 20210211
  7. VANCOMYCIN [Concomitant]
     Active Substance: VANCOMYCIN
     Indication: Clostridium test positive
     Dosage: 125 MILLIGRAM, QID
     Route: 048
     Dates: start: 20210126, end: 20210203
  8. METHYLPREDNISOLONE [Concomitant]
     Active Substance: METHYLPREDNISOLONE
     Indication: Transplant rejection
     Dosage: 99.99 MILLIGRAM, QID THEN BID
     Route: 042
     Dates: start: 20210117, end: 20210123
  9. INSULIN NOS [Concomitant]
     Active Substance: INSULIN NOS
     Indication: Hyperglycaemia
     Dosage: 9999.99 UNITS
     Route: 058
     Dates: start: 20200908
  10. SCOPOLAMINE [Concomitant]
     Active Substance: SCOPOLAMINE
     Indication: Nausea
     Dosage: 1.50 MILLIGRAM
     Route: 062
     Dates: start: 20201016
  11. ZOFRAN [Concomitant]
     Active Substance: ONDANSETRON HYDROCHLORIDE
     Indication: Nausea
     Dosage: 4 MILLIGRAM
     Route: 042
     Dates: start: 20200910, end: 20201015
  12. ZOFRAN [Concomitant]
     Active Substance: ONDANSETRON HYDROCHLORIDE
     Dosage: 4 MILLIGRAM
     Route: 060
     Dates: start: 20201016

REACTIONS (7)
  - Transplant rejection [Recovered/Resolved]
  - Gastrointestinal stoma output increased [Recovered/Resolved]
  - Abdominal pain [Not Recovered/Not Resolved]
  - Pneumatosis intestinalis [Recovered/Resolved]
  - Malnutrition [Recovered/Resolved]
  - Clostridium test positive [Recovered/Resolved]
  - Steatorrhoea [Not Recovered/Not Resolved]

NARRATIVE: CASE EVENT DATE: 20200101
